FAERS Safety Report 18013534 (Version 1)
Quarter: 2020Q3

REPORT INFORMATION
  Report Type: Spontaneous
  Country: US (occurrence: US)
  Receive Date: 20200713
  Receipt Date: 20200713
  Transmission Date: 20201103
  Serious: No
  Sender: FDA-Public Use
  Company Number: US-BAUSCH-BL-2020-018492

PATIENT
  Age: 82 Year
  Sex: Female
  Weight: 52.16 kg

DRUGS (1)
  1. ERYTHROMYCIN OPHTHALMIC OINTMENT USP 0.5% [Suspect]
     Active Substance: ERYTHROMYCIN
     Indication: PRODUCT USED FOR UNKNOWN INDICATION
     Dosage: ADVISED TO USE IT TWO TO THREE TIMES A WEEK
     Route: 065

REACTIONS (2)
  - Eye disorder [Not Recovered/Not Resolved]
  - Product prescribing error [Unknown]
